FAERS Safety Report 5283649-6 (Version None)
Quarter: 2007Q1

REPORT INFORMATION
  Report Type: 
  Country: None (occurrence: None)
  Receive Date: 20061226
  Receipt Date: 20060918
  Transmission Date: 20070707
  Serious: Yes (Other)
  Sender: FDA-Public Use
  Company Number: 2006S1000224

PATIENT
  Age: 41 Year
  Sex: Female
  Weight: 57.0171 kg

DRUGS (1)
  1. ACITRETIN [Suspect]
     Indication: PSORIASIS
     Dosage: 30 MG;QD;PO
     Route: 048
     Dates: start: 20060729, end: 20060904

REACTIONS (9)
  - ANOREXIA [None]
  - CHAPPED LIPS [None]
  - CRYING [None]
  - DEPRESSED MOOD [None]
  - DEPRESSIVE SYMPTOM [None]
  - DERMATITIS BULLOUS [None]
  - EPISTAXIS [None]
  - PRURITUS [None]
  - PSORIASIS [None]
